FAERS Safety Report 10314782 (Version 2)
Quarter: 2014Q3

REPORT INFORMATION
  Report Type: Spontaneous
  Country: US (occurrence: US)
  Receive Date: 20140718
  Receipt Date: 20140718
  Transmission Date: 20150326
  Serious: Yes (Hospitalization, Other)
  Sender: FDA-Public Use
  Company Number: US-009507513-2009SP023526

PATIENT
  Sex: Female
  Weight: 88.91 kg

DRUGS (5)
  1. ALBUTEROL. [Concomitant]
     Active Substance: ALBUTEROL
     Indication: HYPERSENSITIVITY
     Dosage: UNK UNK, PRN
     Dates: start: 2006
  2. NUVARING [Suspect]
     Active Substance: ETHINYL ESTRADIOL\ETONOGESTREL
     Indication: CONTRACEPTION
  3. FEXOFENADINE HYDROCHLORIDE (+) PSEUDOEPHEDRINE HYDROCHLORIDE [Concomitant]
     Indication: HYPERSENSITIVITY
     Dosage: UNK UNK, BID
     Dates: start: 2006
  4. NUVARING [Suspect]
     Active Substance: ETHINYL ESTRADIOL\ETONOGESTREL
     Indication: CONTRACEPTION
     Dates: start: 200512, end: 200709
  5. SINGULAIR [Concomitant]
     Active Substance: MONTELUKAST SODIUM
     Indication: HYPERSENSITIVITY
     Dosage: UNK UNK, QD
     Dates: start: 2006

REACTIONS (16)
  - Diastolic hypertension [Unknown]
  - Erythema nodosum [Unknown]
  - Phlebitis superficial [Unknown]
  - Pulmonary embolism [Recovered/Resolved]
  - Peripheral venous disease [Not Recovered/Not Resolved]
  - Cor pulmonale [Unknown]
  - Phlebitis [Unknown]
  - Electrocardiogram abnormal [Unknown]
  - Hyperglycaemia [Unknown]
  - Oedema peripheral [Unknown]
  - Asthma [Unknown]
  - Microcytic anaemia [Unknown]
  - Syncope [Unknown]
  - Myalgia [Unknown]
  - Hypovolaemia [Recovering/Resolving]
  - Arthralgia [Unknown]

NARRATIVE: CASE EVENT DATE: 2006
